FAERS Safety Report 7771715-2 (Version None)
Quarter: 2011Q3

REPORT INFORMATION
  Report Type: 
  Country: None (occurrence: None)
  Receive Date: 20110922
  Receipt Date: 20110427
  Transmission Date: 20111222
  Serious: No
  Sender: FDA-Public Use
  Company Number: US-ASTRAZENECA-2008UW15391

PATIENT
  Sex: Female
  Weight: 107 kg

DRUGS (5)
  1. SEROQUEL [Suspect]
     Route: 048
     Dates: start: 20070101, end: 20070101
  2. HYOSCYAMINE [Concomitant]
  3. ATENOLOL [Concomitant]
  4. SEROQUEL [Suspect]
     Indication: BIPOLAR DISORDER
     Route: 048
     Dates: start: 20050901, end: 20051101
  5. LITHIUM [Concomitant]

REACTIONS (3)
  - ILL-DEFINED DISORDER [None]
  - HYPOTENSION [None]
  - HYPERSOMNIA [None]
